FAERS Safety Report 23200087 (Version 4)
Quarter: 2025Q2

REPORT INFORMATION
  Report Type: Spontaneous
  Country: US (occurrence: US)
  Receive Date: 20231117
  Receipt Date: 20250520
  Transmission Date: 20250716
  Serious: Yes (Other)
  Sender: AUROBINDO
  Company Number: US-MLMSERVICE-20231102-4634460-1

PATIENT
  Age: 14 Year
  Sex: Male

DRUGS (8)
  1. DEXAMETHASONE [Suspect]
     Active Substance: DEXAMETHASONE
     Indication: Prophylaxis against graft versus host disease
     Dosage: 5 MILLILITER, FOUR TIMES/DAY (0.1 MG/ML SOLUTION AT 5ML FOUR TIMES A DAY)
     Route: 048
  2. DEXAMETHASONE [Suspect]
     Active Substance: DEXAMETHASONE
     Indication: Graft versus host disease
  3. DEXAMETHASONE [Suspect]
     Active Substance: DEXAMETHASONE
     Indication: Idiopathic pneumonia syndrome
  4. DEXAMETHASONE [Suspect]
     Active Substance: DEXAMETHASONE
     Indication: B-cell type acute leukaemia
  5. PREDNISONE [Concomitant]
     Active Substance: PREDNISONE
     Indication: Graft versus host disease
  6. PREDNISONE [Concomitant]
     Active Substance: PREDNISONE
     Indication: Idiopathic pneumonia syndrome
  7. DEXTROSE [Concomitant]
     Active Substance: DEXTROSE MONOHYDRATE
     Indication: Product used for unknown indication
     Route: 042
  8. NOREPINEPHRINE [Concomitant]
     Active Substance: NOREPINEPHRINE
     Indication: Product used for unknown indication
     Route: 065

REACTIONS (2)
  - Hypothalamic pituitary adrenal axis suppression [Recovered/Resolved]
  - Adrenal insufficiency [Recovered/Resolved]
